FAERS Safety Report 10735077 (Version 1)
Quarter: 2015Q1

REPORT INFORMATION
  Report Type: Spontaneous
  Country: FR (occurrence: FR)
  Receive Date: 20150123
  Receipt Date: 20150123
  Transmission Date: 20150721
  Serious: Yes (Other)
  Sender: FDA-Public Use
  Company Number: FR-ROXANE LABORATORIES, INC.-2015-RO-00100RO

PATIENT
  Sex: Female

DRUGS (1)
  1. DEXAMETHASONE. [Suspect]
     Active Substance: DEXAMETHASONE
     Indication: PROPHYLAXIS
     Route: 065

REACTIONS (7)
  - Weight increased [Unknown]
  - Exposure during pregnancy [None]
  - Placental hypertrophy [Unknown]
  - Polyhydramnios [Unknown]
  - Skin striae [Unknown]
  - Pancreatitis acute [Unknown]
  - Acne [Unknown]
